FAERS Safety Report 6273723-X (Version None)
Quarter: 2009Q3

REPORT INFORMATION
  Report Type: 
  Country: None (occurrence: None)
  Receive Date: 20090713
  Receipt Date: 20080528
  Transmission Date: 20100115
  Serious: Yes (Hospitalization)
  Sender: FDA-Public Use
  Company Number: 566891

PATIENT
  Age: 61 Year
  Sex: Female

DRUGS (6)
  1. BONIVA [Suspect]
     Indication: OSTEOPOROSIS
     Dosage: 150 MG 1 PER MONTH ORAL
     Route: 048
  2. CALCIUM (CALCIUM) [Concomitant]
  3. VITAMIN (VITAMIN NOS) [Concomitant]
  4. MAGNESIUM SULFATE [Concomitant]
  5. ASPIRIN [Concomitant]
  6. IRON (IRON NOS) [Concomitant]

REACTIONS (3)
  - HAEMORRHAGE [None]
  - HIP FRACTURE [None]
  - WEIGHT INCREASED [None]
